FAERS Safety Report 9458339 (Version 1)
Quarter: 2013Q3

REPORT INFORMATION
  Report Type: Spontaneous
  Country: US (occurrence: US)
  Receive Date: 20130814
  Receipt Date: 20130814
  Transmission Date: 20140515
  Serious: Yes (Other)
  Sender: FDA-Public Use
  Company Number: US-PFIZER INC-2013234509

PATIENT
  Age: 38 Year
  Sex: Female
  Weight: 57.6 kg

DRUGS (2)
  1. XANAX [Suspect]
     Indication: ANXIETY
     Dosage: 2 MG, 3X/DAY
     Dates: start: 2001
  2. DOXEPIN [Concomitant]
     Indication: DEPRESSION
     Dosage: 25 MG, 3X/DAY

REACTIONS (3)
  - Road traffic accident [Unknown]
  - Fibromyalgia [Unknown]
  - Pain [Unknown]
